FAERS Safety Report 9953442 (Version 1)
Quarter: 2014Q1

REPORT INFORMATION
  Report Type: Report from Study
  Country: US (occurrence: US)
  Receive Date: 20140304
  Receipt Date: 20140304
  Transmission Date: 20141002
  Serious: Yes (Other)
  Sender: FDA-Public Use
  Company Number: US-ABBVIE-13P-163-1076023-00

PATIENT
  Age: 38 Year
  Sex: Female

DRUGS (14)
  1. HUMIRA [Suspect]
     Indication: COLITIS ULCERATIVE
     Dosage: LOADING DOSE
     Dates: start: 20130405
  2. LIALDA [Concomitant]
     Indication: PRODUCT USED FOR UNKNOWN INDICATION
     Dosage: 4 TABS EVERY MORNING
  3. IRON [Concomitant]
     Indication: PRODUCT USED FOR UNKNOWN INDICATION
  4. ZOLOFT [Concomitant]
     Indication: PRODUCT USED FOR UNKNOWN INDICATION
  5. LAMICTAL [Concomitant]
     Indication: PRODUCT USED FOR UNKNOWN INDICATION
  6. PREDNISONE [Concomitant]
     Indication: PRODUCT USED FOR UNKNOWN INDICATION
  7. GABAPENTIN [Concomitant]
     Indication: HEADACHE
     Dosage: AT BEDTIME
  8. AMITRIPTYLINE [Concomitant]
     Indication: PAIN
     Dosage: 1 IN 1 DAY, AS NEEDED
  9. AMITRIPTYLINE [Concomitant]
     Indication: INSOMNIA
  10. TRAZODONE [Concomitant]
     Indication: PRODUCT USED FOR UNKNOWN INDICATION
     Dosage: AS NEEDED
  11. DILAUDID [Concomitant]
     Indication: PAIN
     Dosage: 1 TAB, EVERY 4 TO 6 HOURS, AS NEEDED
  12. ZOFRAN [Concomitant]
     Indication: NAUSEA
     Dosage: 1 TAB, 4 IN 1 DAY, AS NEEDED
  13. PHENERGAN [Concomitant]
     Indication: NAUSEA
     Dosage: 1 TAB, 1 IN 6 HOURS, AS NEEDED
  14. PEPCID [Concomitant]
     Indication: PRODUCT USED FOR UNKNOWN INDICATION

REACTIONS (2)
  - Tooth extraction [Recovering/Resolving]
  - Impaired healing [Unknown]
